FAERS Safety Report 18690756 (Version 2)
Quarter: 2021Q1

REPORT INFORMATION
  Report Type: Spontaneous
  Country: JP (occurrence: JP)
  Receive Date: 20210101
  Receipt Date: 20210204
  Transmission Date: 20210419
  Serious: Yes (Other)
  Sender: FDA-Public Use
  Company Number: JP-AMGEN-JPNSP2020191211

PATIENT
  Sex: Female

DRUGS (6)
  1. DEPAS [ETIZOLAM] [Concomitant]
     Active Substance: ETIZOLAM
     Dosage: 0.5 MG, QD
     Route: 048
  2. CLOPIDOGREL [Concomitant]
     Active Substance: CLOPIDOGREL BISULFATE
     Dosage: 50 MILLIGRAM, QD
     Route: 065
     Dates: start: 20201110
  3. EDIROL [Suspect]
     Active Substance: ELDECALCITOL
     Indication: PRODUCT USED FOR UNKNOWN INDICATION
     Dosage: 0.5 UG, QD
     Route: 048
     Dates: start: 20191001, end: 20201110
  4. AMLODIPINE [Concomitant]
     Active Substance: AMLODIPINE BESYLATE
     Dosage: 2.5 MILLIGRAM, QD
     Route: 048
     Dates: start: 20181013
  5. PRALIA [Suspect]
     Active Substance: DENOSUMAB
     Indication: OSTEOPOROSIS
     Dosage: UNK
     Route: 058
     Dates: start: 20200701
  6. ARIMIDEX [Concomitant]
     Active Substance: ANASTROZOLE
     Dosage: 1 MILLIGRAM, QD
     Route: 048
     Dates: start: 20020101

REACTIONS (3)
  - Blood uric acid increased [Recovered/Resolved]
  - Blood creatinine increased [Recovered/Resolved]
  - Carotid artery stenosis [Unknown]

NARRATIVE: CASE EVENT DATE: 20200901
